FAERS Safety Report 11459369 (Version 1)
Quarter: 2015Q3

REPORT INFORMATION
  Report Type: Spontaneous
  Country: US (occurrence: US)
  Receive Date: 20150904
  Receipt Date: 20150904
  Transmission Date: 20151125
  Serious: No
  Sender: FDA-Public Use
  Company Number: US-JNJFOC-20150805531

PATIENT
  Age: 53 Year
  Sex: Male
  Weight: 106.6 kg

DRUGS (1)
  1. STELARA [Suspect]
     Active Substance: USTEKINUMAB
     Indication: PSORIASIS
     Route: 058
     Dates: start: 20150123

REACTIONS (3)
  - Chest discomfort [Unknown]
  - Paraesthesia [Unknown]
  - Throat tightness [Unknown]

NARRATIVE: CASE EVENT DATE: 2015
